FAERS Safety Report 9322570 (Version 1)
Quarter: 2013Q2

REPORT INFORMATION
  Report Type: Spontaneous
  Country: CH (occurrence: FR)
  Receive Date: 20130531
  Receipt Date: 20130531
  Transmission Date: 20140414
  Serious: Yes (Other)
  Sender: FDA-Public Use
  Company Number: CH-PFIZER INC-2013160432

PATIENT
  Age: 67 Year
  Sex: Female

DRUGS (1)
  1. XALATAN [Suspect]
     Indication: GLAUCOMA
     Dosage: UNK

REACTIONS (6)
  - Keratitis [Unknown]
  - Eye pain [Unknown]
  - Eye swelling [Unknown]
  - Wound secretion [Unknown]
  - Eye pruritus [Unknown]
  - Eye irritation [Unknown]
